FAERS Safety Report 24459446 (Version 1)
Quarter: 2024Q4

REPORT INFORMATION
  Report Type: Spontaneous
  Country: CN (occurrence: CN)
  Receive Date: 20241018
  Receipt Date: 20241018
  Transmission Date: 20250115
  Serious: No
  Sender: ROCHE
  Company Number: CN-ROCHE-3529331

PATIENT
  Age: 70 Year
  Sex: Male

DRUGS (12)
  1. MABTHERA [Suspect]
     Active Substance: RITUXIMAB
     Indication: Mantle cell lymphoma
     Dosage: RCHOP, RDHAP, ON 13 JUL 2016, 22 AUG 2016, 08 OCT 2016 AND 21 NOV 2016
     Route: 065
  2. GAZYVA [Suspect]
     Active Substance: OBINUTUZUMAB
     Indication: Mantle cell lymphoma
     Dosage: GB D0 D7 D14
     Route: 042
  3. DOXORUBICIN [Concomitant]
     Active Substance: DOXORUBICIN
     Indication: Mantle cell lymphoma
     Dosage: RCHOP
  4. VINCRISTINE [Concomitant]
     Active Substance: VINCRISTINE
     Indication: Mantle cell lymphoma
     Dosage: RCHOP
  5. PREDNISONE [Concomitant]
     Active Substance: PREDNISONE
     Indication: Mantle cell lymphoma
     Dosage: RCHOP,  IBRUTINIB+ COP
  6. CISPLATIN [Concomitant]
     Active Substance: CISPLATIN
     Indication: Mantle cell lymphoma
     Dosage: DHAP, RDHAP, ON 13 JUL 2016, 22 AUG 2016, 08 OCT 2016 AND 21 NOV 2016
     Dates: start: 20160613
  7. CYTARABINE [Concomitant]
     Active Substance: CYTARABINE
     Indication: Mantle cell lymphoma
     Dosage: DHAP, RDHAP, ON 13 JUL 2016, 22 AUG 2016, 08 OCT 2016 AND 21 NOV 2016
     Dates: start: 20160613
  8. DEXAMETHASONE [Concomitant]
     Active Substance: DEXAMETHASONE
     Indication: Mantle cell lymphoma
     Dosage: DHAP, RDHAP, ON 13 JUL 2016, 22 AUG 2016, 08 OCT 2016 AND 21 NOV 2016
     Dates: start: 20160613
  9. BENDAMUSTINE [Concomitant]
     Active Substance: BENDAMUSTINE
     Indication: Mantle cell lymphoma
     Dosage: GB D1-D2
  10. IBRUTINIB [Concomitant]
     Active Substance: IBRUTINIB
     Indication: Mantle cell lymphoma
     Dosage: 560MG PER DAY
     Route: 048
  11. THALIDOMIDE [Concomitant]
     Active Substance: THALIDOMIDE
     Indication: Mantle cell lymphoma
  12. CYCLOPHOSPHAMIDE [Concomitant]
     Active Substance: CYCLOPHOSPHAMIDE
     Indication: Mantle cell lymphoma
     Dosage: RCHOP

REACTIONS (3)
  - Blood creatinine increased [Unknown]
  - Hypoaesthesia [Unknown]
  - Off label use [Unknown]
